FAERS Safety Report 11810895 (Version 1)
Quarter: 2015Q4

REPORT INFORMATION
  Report Type: Spontaneous
  Country: ES (occurrence: ES)
  Receive Date: 20151208
  Receipt Date: 20151208
  Transmission Date: 20160305
  Serious: No
  Sender: FDA-Public Use
  Company Number: ES-JNJFOC-20151202417

PATIENT
  Age: 85 Year
  Sex: Female

DRUGS (3)
  1. OTHER DERMATOLOGICALS [Interacting]
     Active Substance: UNSPECIFIED INGREDIENT
     Indication: PRODUCT USED FOR UNKNOWN INDICATION
     Route: 061
  2. DUROGESIC [Suspect]
     Active Substance: FENTANYL
     Indication: ARTHRALGIA
     Dosage: 3 PATCHES
     Route: 062
  3. EFFENTORA [Suspect]
     Active Substance: FENTANYL CITRATE
     Indication: PRODUCT USED FOR UNKNOWN INDICATION
     Route: 065

REACTIONS (6)
  - Drug administered at inappropriate site [Unknown]
  - Product quality issue [Unknown]
  - Drug interaction [Unknown]
  - Drug ineffective [Unknown]
  - Somnolence [Unknown]
  - Product adhesion issue [None]
